FAERS Safety Report 18034280 (Version 1)
Quarter: 2020Q3

REPORT INFORMATION
  Report Type: Spontaneous
  Country: US (occurrence: US)
  Receive Date: 20200716
  Receipt Date: 20200716
  Transmission Date: 20201103
  Serious: No
  Sender: FDA-Public Use
  Company Number: US-BRISTOL-MYERS SQUIBB COMPANY-BMS-2020-056902

PATIENT

DRUGS (1)
  1. COUMADIN [Suspect]
     Active Substance: WARFARIN SODIUM
     Indication: AORTIC THROMBOSIS
     Dosage: UNK
     Route: 065

REACTIONS (3)
  - International normalised ratio fluctuation [Unknown]
  - Frustration tolerance decreased [Unknown]
  - Off label use [Unknown]
